FAERS Safety Report 14551863 (Version 15)
Quarter: 2020Q3

REPORT INFORMATION
  Report Type: Spontaneous
  Country: US (occurrence: US)
  Receive Date: 20180220
  Receipt Date: 20200826
  Transmission Date: 20201102
  Serious: Yes (Other)
  Sender: FDA-Public Use
  Company Number: US-PFIZER INC-2018064235

PATIENT
  Age: 73 Year
  Sex: Female

DRUGS (9)
  1. PREMARIN [Suspect]
     Active Substance: ESTROGENS, CONJUGATED
     Dosage: 0.625 MG, 1X/DAY
  2. CLONAZEPAM. [Concomitant]
     Active Substance: CLONAZEPAM
     Dosage: 1 MG, 4X/DAY
     Route: 048
  3. DIAZEPAM. [Concomitant]
     Active Substance: DIAZEPAM
     Dosage: 2.5 MG, 3X/DAY
     Route: 048
  4. CELEBREX [Suspect]
     Active Substance: CELECOXIB
     Indication: PAIN
     Dosage: 100 MG, 2X/DAY
     Route: 048
  5. PREMARIN [Suspect]
     Active Substance: ESTROGENS, CONJUGATED
     Indication: HORMONE REPLACEMENT THERAPY
     Dosage: 0.625 MG, DAILY (1 TABLET PER DAY)
     Route: 048
  6. CELEBREX [Suspect]
     Active Substance: CELECOXIB
     Indication: OSTEOARTHRITIS
     Dosage: UNK, DAILY (100 MG CAPSULES, 1 TO 2 CAPSULES PER DAY DEPENDING ON PAIN)
  7. PREMARIN [Suspect]
     Active Substance: ESTROGENS, CONJUGATED
     Indication: VULVOVAGINAL DRYNESS
     Dosage: UNK, (USES SUITABLE AMOUNT ON FINGER 2?3 TIMES PER WEEK VAGINALLY)
     Route: 067
  8. ZOLPIDEM [Concomitant]
     Active Substance: ZOLPIDEM TARTRATE
     Dosage: 10 MG, 1X/DAY
     Route: 048
  9. BONIVA [Concomitant]
     Active Substance: IBANDRONATE SODIUM
     Dosage: 150 MG, MONTHLY
     Route: 048

REACTIONS (5)
  - Blood iron increased [Unknown]
  - Illness [Unknown]
  - Hypertension [Unknown]
  - Body height decreased [Unknown]
  - Hypoacusis [Unknown]
